FAERS Safety Report 7171085-7 (Version None)
Quarter: 2010Q4

REPORT INFORMATION
  Report Type: 
  Country: None (occurrence: None)
  Receive Date: 20101217
  Receipt Date: 20101207
  Transmission Date: 20110411
  Serious: Yes (Hospitalization)
  Sender: FDA-Public Use
  Company Number: PL-SANOFI-AVENTIS-2010SA074138

PATIENT
  Weight: 73 kg

DRUGS (9)
  1. DRONEDARONE HCL [Suspect]
     Indication: ATRIAL FIBRILLATION
     Route: 048
     Dates: start: 20101201
  2. DILTIAZEM [Concomitant]
  3. FUROSEMIDE [Concomitant]
  4. WARFARIN SODIUM [Concomitant]
     Dosage: 175 MG WEEKLY
  5. RAMIPRIL [Concomitant]
  6. POTASSIUM [Concomitant]
  7. THEOPHYLLINE [Concomitant]
  8. FORMOTEROL FUMARATE [Concomitant]
  9. IPRATROPIUM BROMIDE [Concomitant]

REACTIONS (1)
  - HEPATIC ENZYME INCREASED [None]
